FAERS Safety Report 13343938 (Version 1)
Quarter: 2017Q1

REPORT INFORMATION
  Report Type: Report from Study
  Country: US (occurrence: US)
  Receive Date: 20170316
  Receipt Date: 20170316
  Transmission Date: 20170428
  Serious: Yes (Other)
  Sender: FDA-Public Use
  Company Number: US-BAXALTA-2017BLT001866

PATIENT
  Age: 4 Year
  Sex: Male

DRUGS (5)
  1. CUVITRU [Suspect]
     Active Substance: HUMAN IMMUNOGLOBULIN G
     Dosage: 2 G, 1X A WEEK IN ARMS
     Route: 058
     Dates: start: 20170203
  2. CUVITRU [Suspect]
     Active Substance: HUMAN IMMUNOGLOBULIN G
     Dosage: 2 G, 1X A WEEK IN ARMS
     Route: 058
     Dates: start: 20170210
  3. CUVITRU [Suspect]
     Active Substance: HUMAN IMMUNOGLOBULIN G
     Dosage: 2 G, 1X A WEEK IN ARMS
     Route: 058
     Dates: start: 20170216
  4. CUVITRU [Suspect]
     Active Substance: HUMAN IMMUNOGLOBULIN G
     Indication: IMMUNODEFICIENCY COMMON VARIABLE
     Dosage: 2 G, 1X A WEEK IN ARMS
     Route: 058
     Dates: start: 20170119
  5. CUVITRU [Suspect]
     Active Substance: HUMAN IMMUNOGLOBULIN G
     Dosage: 2 G, 1X A WEEK IN ARMS
     Route: 058
     Dates: start: 20170127

REACTIONS (20)
  - Anger [Recovered/Resolved]
  - Infusion site pain [Recovered/Resolved]
  - Rhinorrhoea [Recovered/Resolved]
  - Eye movement disorder [Recovered/Resolved]
  - Infusion site extravasation [Recovered/Resolved]
  - Infusion site urticaria [Recovered/Resolved]
  - Aggression [Recovered/Resolved]
  - Flushing [Recovered/Resolved]
  - Dyspnoea [Recovered/Resolved]
  - Dilated pores [Recovered/Resolved]
  - Infusion site pain [Recovered/Resolved]
  - Anxiety [Recovered/Resolved]
  - Swelling [Recovered/Resolved]
  - Infusion site discolouration [Recovered/Resolved]
  - Cough [Recovered/Resolved]
  - Seizure [Recovered/Resolved]
  - Infusion site swelling [Recovered/Resolved]
  - Device dislocation [Recovered/Resolved]
  - Underdose [Recovered/Resolved]
  - Psychomotor hyperactivity [Recovered/Resolved]

NARRATIVE: CASE EVENT DATE: 20170119
